FAERS Safety Report 6508992-1 (Version None)
Quarter: 2009Q4

REPORT INFORMATION
  Report Type: 
  Country: None (occurrence: None)
  Receive Date: 20091221
  Receipt Date: 20090908
  Transmission Date: 20100525
  Serious: No
  Sender: FDA-Public Use
  Company Number: US-ASTRAZENECA-2009SE12312

PATIENT
  Age: 83 Year
  Sex: Male
  Weight: 85.7 kg

DRUGS (7)
  1. CRESTOR [Suspect]
     Indication: BLOOD CHOLESTEROL INCREASED
     Route: 048
     Dates: end: 20090904
  2. METHADONE HYDROCHLORIDE [Concomitant]
  3. NEURONTIN [Concomitant]
  4. LOZEPAM [Concomitant]
  5. LOTREL [Concomitant]
  6. PREVACID [Concomitant]
  7. LAXATIVE [Concomitant]

REACTIONS (5)
  - HEPATIC ENZYME INCREASED [None]
  - MUSCULAR WEAKNESS [None]
  - MYALGIA [None]
  - RASH [None]
  - RENAL PAIN [None]
